FAERS Safety Report 11932420 (Version 1)
Quarter: 2016Q1

REPORT INFORMATION
  Report Type: Spontaneous
  Country: US (occurrence: US)
  Receive Date: 20160120
  Receipt Date: 20160120
  Transmission Date: 20160526
  Serious: No
  Sender: FDA-Public Use
  Company Number: CHPA2016US000996

PATIENT
  Age: 84 Year
  Sex: Female

DRUGS (1)
  1. VOLTAREN [Suspect]
     Active Substance: DICLOFENAC SODIUM
     Indication: ARTHRITIS
     Dosage: 1 CAPFUL, BID
     Route: 061
     Dates: start: 2015

REACTIONS (6)
  - Oral pain [Recovered/Resolved]
  - Wrong technique in product usage process [Unknown]
  - Neck pain [Recovering/Resolving]
  - Neck pain [Recovered/Resolved]
  - Oral pain [Recovering/Resolving]
  - Inappropriate schedule of drug administration [Unknown]

NARRATIVE: CASE EVENT DATE: 2015
